FAERS Safety Report 9506735 (Version 1)
Quarter: 2013Q3

REPORT INFORMATION
  Report Type: Spontaneous
  Country: IE (occurrence: None)
  Receive Date: 20130904
  Receipt Date: 20130904
  Transmission Date: 20140515
  Serious: Yes (Other)
  Sender: FDA-Public Use
  Company Number: FK201303848

PATIENT
  Age: 79 Year
  Sex: Male

DRUGS (1)
  1. GEMCITABINE [Suspect]
     Indication: ADENOCARCINOMA PANCREAS

REACTIONS (2)
  - Eosinophilic pneumonia [None]
  - Interstitial lung disease [None]
